FAERS Safety Report 8305941-0 (Version None)
Quarter: 2012Q1

REPORT INFORMATION
  Report Type: 
  Country: None (occurrence: None)
  Receive Date: 20120326
  Receipt Date: 20111003
  Transmission Date: 20120608
  Serious: Yes (Other)
  Sender: FDA-Public Use
  Company Number: PHEH2011US05854

PATIENT

DRUGS (1)
  1. VIVELLE-DOT [Suspect]

REACTIONS (2)
  - LARYNGEAL OEDEMA [None]
  - DYSPNOEA [None]
